FAERS Safety Report 21138237 (Version 2)
Quarter: 2022Q3

REPORT INFORMATION
  Report Type: Spontaneous
  Country: US (occurrence: US)
  Receive Date: 20220727
  Receipt Date: 20220829
  Transmission Date: 20221027
  Serious: No
  Sender: FDA-Public Use
  Company Number: US-TAKEDA-2022TUS050176

PATIENT
  Age: 87 Year
  Sex: Male

DRUGS (1)
  1. EXKIVITY [Suspect]
     Active Substance: MOBOCERTINIB
     Indication: EGFR gene mutation
     Dosage: UNK
     Route: 065

REACTIONS (2)
  - Weight decreased [Unknown]
  - Diarrhoea [Unknown]
